FAERS Safety Report 17825501 (Version 7)
Quarter: 2020Q3

REPORT INFORMATION
  Report Type: Report from Study
  Country: US (occurrence: US)
  Receive Date: 20200526
  Receipt Date: 20200902
  Transmission Date: 20201102
  Serious: Yes (Other)
  Sender: FDA-Public Use
  Company Number: NVSC2020US143591

PATIENT
  Sex: Female

DRUGS (3)
  1. COSENTYX [Suspect]
     Active Substance: SECUKINUMAB
     Dosage: 150 MG, Q4W (DIRECTIONS AFTER LOADING DOSE WAS 150MG EVERY 4 WEEKS)
     Route: 065
     Dates: start: 20200812
  2. COSENTYX [Suspect]
     Active Substance: SECUKINUMAB
     Indication: PSORIATIC ARTHROPATHY
     Dosage: 150 MG, QW
     Route: 058
  3. REMICADE [Suspect]
     Active Substance: INFLIXIMAB
     Indication: PRODUCT USED FOR UNKNOWN INDICATION
     Route: 065

REACTIONS (19)
  - Visual impairment [Unknown]
  - Injection site haemorrhage [Unknown]
  - Frequent bowel movements [Unknown]
  - Accidental exposure to product [Unknown]
  - Guttate psoriasis [Unknown]
  - Diarrhoea [Unknown]
  - Muscle spasms [Unknown]
  - Complication associated with device [Unknown]
  - Pain of skin [Unknown]
  - Pruritus [Unknown]
  - Erythema [Unknown]
  - Skin disorder [Unknown]
  - Device malfunction [Unknown]
  - Nasal disorder [Unknown]
  - Skin weeping [Unknown]
  - Venous haemorrhage [Unknown]
  - Incorrect dose administered [Unknown]
  - Otorrhoea [Unknown]
  - Psoriasis [Unknown]
